FAERS Safety Report 20462627 (Version 1)
Quarter: 2022Q1

REPORT INFORMATION
  Report Type: Spontaneous
  Country: US (occurrence: US)
  Receive Date: 20220211
  Receipt Date: 20220211
  Transmission Date: 20220424
  Serious: Yes (Hospitalization, Other)
  Sender: FDA-Public Use
  Company Number: US-BAYER-2022A019477

PATIENT
  Age: 81 Year
  Sex: Male
  Weight: 81.6 kg

DRUGS (9)
  1. BAYER LOW DOSE [Suspect]
     Active Substance: ASPIRIN
     Indication: Cardiovascular event prophylaxis
     Dosage: 81 MG, QD
     Route: 048
     Dates: start: 20210617, end: 20220109
  2. LECANEMAB [Suspect]
     Active Substance: LECANEMAB
     Indication: Dementia Alzheimer^s type
     Dosage: 10 MG/KG(SUBJECT INITIATED CORE STUDY)
     Route: 042
     Dates: start: 20191202, end: 20220104
  3. LECANEMAB [Suspect]
     Active Substance: LECANEMAB
     Indication: Dementia Alzheimer^s type
     Dosage: 10 MG/KG(INITIATED OPEN LABEL EXTENSION PHASE)
     Dates: start: 20191202, end: 20220104
  4. ELIQUIS [Suspect]
     Active Substance: APIXABAN
     Indication: Atrial fibrillation
     Dosage: 5 MG, BID
     Route: 065
     Dates: start: 20201211, end: 20210517
  5. ELIQUIS [Suspect]
     Active Substance: APIXABAN
     Indication: Atrial fibrillation
     Dosage: UNK
     Dates: start: 20220114
  6. PLAVIX [Suspect]
     Active Substance: CLOPIDOGREL BISULFATE
     Indication: Peripheral vascular disorder
     Dosage: 75 MG, QD
     Route: 048
     Dates: start: 20211105, end: 20220109
  7. AMIODARONE [Concomitant]
     Active Substance: AMIODARONE
     Route: 042
  8. FUROSEMIDE [Concomitant]
     Active Substance: FUROSEMIDE
     Dosage: 40 MG
  9. CARDIZEN [Concomitant]
     Route: 048

REACTIONS (8)
  - Gastrointestinal haemorrhage [Not Recovered/Not Resolved]
  - Anaemia [Recovered/Resolved]
  - Back pain [None]
  - Asthenia [None]
  - Malaise [None]
  - Faeces discoloured [Recovered/Resolved]
  - Dyspnoea [None]
  - Labelled drug-drug interaction issue [None]

NARRATIVE: CASE EVENT DATE: 20220109
